FAERS Safety Report 12165645 (Version 1)
Quarter: 2016Q1

REPORT INFORMATION
  Report Type: Spontaneous
  Country: US (occurrence: US)
  Receive Date: 20160309
  Receipt Date: 20160309
  Transmission Date: 20160526
  Serious: Yes (Other)
  Sender: FDA-Public Use
  Company Number: US-TEVA-641031USA

PATIENT
  Sex: Male

DRUGS (1)
  1. NUVIGIL [Suspect]
     Active Substance: ARMODAFINIL
     Dosage: 150 MILLIGRAM DAILY;
     Route: 065
     Dates: start: 2016

REACTIONS (3)
  - Pharyngeal oedema [Unknown]
  - Pain [Unknown]
  - Rash generalised [Unknown]

NARRATIVE: CASE EVENT DATE: 2016
